FAERS Safety Report 6871841-6 (Version None)
Quarter: 2010Q3

REPORT INFORMATION
  Report Type: 
  Country: None (occurrence: None)
  Receive Date: 20100723
  Receipt Date: 20100714
  Transmission Date: 20110219
  Serious: Yes (Hospitalization)
  Sender: FDA-Public Use
  Company Number: US-JNJFOC-20100705169

PATIENT
  Sex: Male

DRUGS (2)
  1. MOTRIN IB [Suspect]
     Indication: LIMB INJURY
     Route: 065
  2. MOTRIN IB [Suspect]
     Indication: JOINT INJURY
     Route: 065

REACTIONS (3)
  - GASTRITIS BACTERIAL [None]
  - OESOPHAGEAL DISCOMFORT [None]
  - PRODUCT QUALITY ISSUE [None]
